FAERS Safety Report 15383743 (Version 1)
Quarter: 2018Q3

REPORT INFORMATION
  Report Type: Spontaneous
  Country: US (occurrence: US)
  Receive Date: 20180913
  Receipt Date: 20180913
  Transmission Date: 20181010
  Serious: Yes (Other)
  Sender: FDA-Public Use
  Company Number: US-PRINSTON PHARMACEUTICAL INC.-2018PRN01248

PATIENT
  Age: 24 Year
  Sex: Female

DRUGS (1)
  1. RISPERIDONE. [Suspect]
     Active Substance: RISPERIDONE

REACTIONS (6)
  - Anger [Unknown]
  - Drug ineffective [Unknown]
  - Confusional state [Unknown]
  - Intentional self-injury [Unknown]
  - Hallucination [Unknown]
  - Restlessness [Unknown]
